FAERS Safety Report 22208473 (Version 1)
Quarter: 2023Q2

REPORT INFORMATION
  Report Type: Spontaneous
  Country: GB (occurrence: GB)
  Receive Date: 20230413
  Receipt Date: 20230413
  Transmission Date: 20230722
  Serious: Yes (Other)
  Sender: FDA-Public Use
  Company Number: GB-CORZA MEDICAL GMBH-2023-GB-002211

PATIENT
  Sex: Female

DRUGS (1)
  1. TACHOSIL [Suspect]
     Active Substance: FIBRINOGEN HUMAN\THROMBIN HUMAN
     Indication: Pelvic exenteration
     Dosage: UNK
     Route: 065

REACTIONS (2)
  - Infection [Unknown]
  - Foreign body in reproductive tract [Unknown]
